FAERS Safety Report 9912207 (Version 1)
Quarter: 2014Q1

REPORT INFORMATION
  Report Type: Spontaneous
  Country: TN (occurrence: TN)
  Receive Date: 20140220
  Receipt Date: 20140220
  Transmission Date: 20141002
  Serious: Yes (Other)
  Sender: FDA-Public Use
  Company Number: TN-BRISTOL-MYERS SQUIBB COMPANY-20191417

PATIENT
  Age: 62 Year
  Sex: Female

DRUGS (9)
  1. GLUCOPHAGE [Suspect]
  2. CRESTOR [Suspect]
  3. BIPRETERAX [Suspect]
  4. KARDEGIC [Suspect]
  5. GLUCOR [Suspect]
  6. AMAREL [Suspect]
  7. RIVOTRIL [Suspect]
  8. LEVEMIR [Suspect]
  9. FIXICAL VITAMINE D3 [Suspect]

REACTIONS (1)
  - Liver disorder [Recovered/Resolved]
